FAERS Safety Report 15356286 (Version 1)
Quarter: 2018Q3

REPORT INFORMATION
  Report Type: Spontaneous
  Country: US (occurrence: US)
  Receive Date: 20180906
  Receipt Date: 20180906
  Transmission Date: 20181010
  Serious: No
  Sender: FDA-Public Use
  Company Number: US-SUNOVION-2018SUN003356

PATIENT
  Sex: Male

DRUGS (1)
  1. LATUDA [Suspect]
     Active Substance: LURASIDONE HYDROCHLORIDE
     Dosage: 40 MG, UNK (CUT THE PILL IN HALF)
     Route: 048

REACTIONS (4)
  - Blood pressure abnormal [Unknown]
  - Pulse abnormal [Unknown]
  - Blood triglycerides abnormal [Unknown]
  - Heart rate abnormal [Unknown]
